FAERS Safety Report 19103764 (Version 3)
Quarter: 2021Q2

REPORT INFORMATION
  Report Type: Report from Study
  Country: CA (occurrence: CA)
  Receive Date: 20210407
  Receipt Date: 20210604
  Transmission Date: 20210717
  Serious: Yes (Other)
  Sender: FDA-Public Use
  Company Number: NVSC2021CA067684

PATIENT
  Sex: Female

DRUGS (2)
  1. PIQRAY [Suspect]
     Active Substance: ALPELISIB
     Indication: BREAST CANCER METASTATIC
     Dosage: 200 MG, QD (STANDARD DOSE IS 300MG OD)
     Route: 048
     Dates: start: 20210310
  2. PIQRAY [Suspect]
     Active Substance: ALPELISIB
     Dosage: 100 MG, QD
     Route: 065

REACTIONS (15)
  - Off label use [Unknown]
  - Muscle spasms [Unknown]
  - Poor quality sleep [Unknown]
  - Contusion [Unknown]
  - Pruritus [Unknown]
  - Stress [Unknown]
  - Blood glucose increased [Unknown]
  - Wound [Unknown]
  - Pain [Unknown]
  - Staphylococcal infection [Unknown]
  - Hypoaesthesia [Unknown]
  - Dry skin [Unknown]
  - Malaise [Unknown]
  - Therapeutic response unexpected [Unknown]
  - Peripheral swelling [Unknown]
